FAERS Safety Report 4697302-0 (Version None)
Quarter: 2005Q2

REPORT INFORMATION
  Report Type: 
  Country: None (occurrence: None)
  Receive Date: 20050622
  Receipt Date: 20050613
  Transmission Date: 20051028
  Serious: Yes (Other)
  Sender: FDA-Public Use
  Company Number: 2005UW08507

PATIENT
  Sex: Male
  Weight: 59.1 kg

DRUGS (7)
  1. PRILOSEC [Suspect]
     Route: 048
  2. DESOXYN [Suspect]
     Indication: FATIGUE
     Route: 048
  3. DESOXYN [Suspect]
     Route: 048
  4. XANAX [Suspect]
  5. OXYCONTIN [Suspect]
  6. DURAGESIC PATCHES [Suspect]
  7. NEURONTIN [Suspect]

REACTIONS (4)
  - FATIGUE [None]
  - IMPRISONMENT [None]
  - LOSS OF CONSCIOUSNESS [None]
  - ROAD TRAFFIC ACCIDENT [None]
